FAERS Safety Report 17316900 (Version 1)
Quarter: 2020Q1

REPORT INFORMATION
  Report Type: Spontaneous
  Country: US (occurrence: US)
  Receive Date: 20200124
  Receipt Date: 20200124
  Transmission Date: 20200409
  Serious: No
  Sender: FDA-Public Use
  Company Number: US-CELGENEUS-USA-20200107157

PATIENT
  Age: 67 Year
  Sex: Male

DRUGS (1)
  1. OTEZLA [Suspect]
     Active Substance: APREMILAST
     Indication: PSORIASIS
     Dosage: 60 MILLIGRAM
     Route: 048
     Dates: start: 20200103

REACTIONS (6)
  - Pituitary tumour benign [Unknown]
  - Heart rate irregular [Unknown]
  - Hypertension [Unknown]
  - Psoriasis [Unknown]
  - Arthritis bacterial [Unknown]
  - Gout [Unknown]

NARRATIVE: CASE EVENT DATE: 202001
